FAERS Safety Report 4785967-4 (Version None)
Quarter: 2005Q3

REPORT INFORMATION
  Report Type: 
  Country: None (occurrence: None)
  Receive Date: 20050930
  Receipt Date: 20050921
  Transmission Date: 20060218
  Serious: Yes (Death, Life-Threatening)
  Sender: FDA-Public Use
  Company Number: 200512980GDS

PATIENT
  Age: 81 Year
  Sex: Female

DRUGS (6)
  1. CIPROFLOXACIN [Suspect]
     Indication: RESPIRATORY TRACT INFECTION
     Dosage: NI, UNK
     Route: 065
  2. AMOXICILLIN AND CLAVULANATE POTASSIUM [Suspect]
     Indication: RESPIRATORY TRACT INFECTION
     Dosage: NI, UNK
     Route: 065
  3. FUROSEMIDE [Suspect]
     Indication: CARDIAC FAILURE
     Dosage: NI, INTRAVENOUS
     Route: 042
  4. NITROGLYCERIN [Suspect]
     Indication: CARDIAC FAILURE
     Dosage: NI, UNK
     Route: 065
  5. CELECOXIB [Concomitant]
  6. RAMIPRIL [Concomitant]

REACTIONS (4)
  - DEHYDRATION [None]
  - HAEMODIALYSIS [None]
  - RENAL FAILURE ACUTE [None]
  - SOMNOLENCE [None]
